FAERS Safety Report 9412230 (Version 2)
Quarter: 2013Q3

REPORT INFORMATION
  Report Type: Report from Study
  Country: BE (occurrence: BE)
  Receive Date: 20130722
  Receipt Date: 20130805
  Transmission Date: 20140515
  Serious: Yes (Other)
  Sender: FDA-Public Use
  Company Number: BE-BAYER-2013-077866

PATIENT
  Age: 78 Year
  Sex: Male

DRUGS (4)
  1. NEXAVAR [Suspect]
     Indication: HEPATOCELLULAR CARCINOMA
     Dosage: DAILY DOSE 800 MG
     Dates: start: 20130621, end: 20130709
  2. CITALOPRAM [Concomitant]
     Dosage: UNK
  3. METATOP [Concomitant]
     Dosage: 2 MG, UNK
  4. TRAZOLAN [Concomitant]

REACTIONS (4)
  - General physical health deterioration [Recovered/Resolved]
  - Hypertension [None]
  - Abdominal pain [None]
  - Constipation [Unknown]
